FAERS Safety Report 17284361 (Version 1)
Quarter: 2020Q1

REPORT INFORMATION
  Report Type: Spontaneous
  Country: US (occurrence: US)
  Receive Date: 20200117
  Receipt Date: 20200117
  Transmission Date: 20200409
  Serious: No
  Sender: FDA-Public Use
  Company Number: US-CHILTERN-US-2019-000812

PATIENT

DRUGS (3)
  1. RHOPRESSA [Suspect]
     Active Substance: NETARSUDIL MESYLATE
     Indication: GLAUCOMA
     Dosage: UNK
     Route: 047
     Dates: start: 20190903
  2. RESTASIS [Concomitant]
     Active Substance: CYCLOSPORINE
     Indication: DRY EYE
     Dosage: UNK, BID
     Route: 047
     Dates: start: 2010
  3. TIMOPTIC [Concomitant]
     Active Substance: TIMOLOL MALEATE
     Indication: GLAUCOMA
     Dosage: UNK, BID
     Route: 047
     Dates: start: 2010

REACTIONS (2)
  - Intraocular pressure increased [Unknown]
  - Drug ineffective [Unknown]
